FAERS Safety Report 20771642 (Version 1)
Quarter: 2022Q2

REPORT INFORMATION
  Report Type: Other
  Country: DE (occurrence: DE)
  Receive Date: 20220430
  Receipt Date: 20220430
  Transmission Date: 20220721
  Serious: Yes (Other)
  Sender: FDA-Public Use
  Company Number: DE-EMBRYOTOX-202002483

PATIENT
  Age: 30 Year
  Sex: Female
  Weight: 70 kg

DRUGS (2)
  1. QUETIAPINE FUMARATE [Suspect]
     Active Substance: QUETIAPINE FUMARATE
     Indication: Bipolar disorder
     Dosage: 50 MG, QD ( (25-0-25) ] 2 SEPARATED DOSES) (1ST TRIMESTER))
     Route: 048
     Dates: start: 20191015, end: 20200716
  2. FOLIC ACID [Suspect]
     Active Substance: FOLIC ACID
     Indication: Prophylaxis of neural tube defect
     Dosage: 5 MG, QD
     Route: 048
     Dates: start: 20191015, end: 20200716

REACTIONS (2)
  - Gestational diabetes [Recovered/Resolved]
  - Exposure during pregnancy [Unknown]
